FAERS Safety Report 9017288 (Version 1)
Quarter: 2013Q1

REPORT INFORMATION
  Report Type: Spontaneous
  Country: US (occurrence: US)
  Receive Date: 20130117
  Receipt Date: 20130117
  Transmission Date: 20140127
  Serious: No
  Sender: FDA-Public Use
  Company Number: US-PFIZER INC-2013015948

PATIENT
  Age: 30 Year
  Sex: Female

DRUGS (3)
  1. GABAPENTIN [Suspect]
     Indication: NEURALGIA
     Dosage: UNK
  2. LYRICA [Suspect]
     Indication: NEURALGIA
     Dosage: 100 MG, 2X/DAY
     Route: 048
  3. LYRICA [Suspect]
     Dosage: 200 MG, 2X/DAY
     Route: 048

REACTIONS (4)
  - Dry mouth [Unknown]
  - Dry eye [Unknown]
  - Oedema peripheral [Unknown]
  - Neuropathy peripheral [Unknown]
